FAERS Safety Report 6369025-3 (Version None)
Quarter: 2009Q3

REPORT INFORMATION
  Report Type: 
  Country: None (occurrence: None)
  Receive Date: 20090922
  Receipt Date: 20090910
  Transmission Date: 20100115
  Serious: Yes (Other)
  Sender: FDA-Public Use
  Company Number: PHHY2009BR26035

PATIENT
  Sex: Female

DRUGS (2)
  1. DIOVAN HCT [Suspect]
     Indication: HYPERTENSION
     Dosage: 1 DF (160/ 12.5 MG) DAILY
     Route: 048
     Dates: start: 20090601
  2. ATENSINA [Concomitant]
     Indication: HYPERTENSION
     Dosage: 0.01 MG, BID, (1 DF IN THE MORNING AND 1 DF AT NIGHT)
     Route: 048
     Dates: start: 20060601

REACTIONS (2)
  - PNEUMONIA [None]
  - PYREXIA [None]
